FAERS Safety Report 23812032 (Version 2)
Quarter: 2024Q3

REPORT INFORMATION
  Report Type: Spontaneous
  Country: US (occurrence: None)
  Receive Date: 20240503
  Receipt Date: 20240709
  Transmission Date: 20241016
  Serious: No
  Sender: ASTRAZENECA
  Company Number: 2024A090222

PATIENT
  Sex: Female

DRUGS (1)
  1. SYMBICORT [Suspect]
     Active Substance: BUDESONIDE\FORMOTEROL FUMARATE DIHYDRATE
     Dosage: 160/4.5 UG, TWO TIMES A DAY
     Route: 055

REACTIONS (8)
  - Panic reaction [Unknown]
  - Device malfunction [Unknown]
  - Wrong technique in device usage process [Unknown]
  - Device use issue [Unknown]
  - Drug dose omission by device [Unknown]
  - Overdose [Unknown]
  - Incorrect dose administered [Unknown]
  - Device issue [Unknown]
